FAERS Safety Report 5201194-0 (Version None)
Quarter: 2007Q1

REPORT INFORMATION
  Report Type: 
  Country: None (occurrence: None)
  Receive Date: 20070103
  Receipt Date: 20061215
  Transmission Date: 20070707
  Serious: Yes (Other)
  Sender: FDA-Public Use
  Company Number: 15392

PATIENT
  Age: 78 Year
  Sex: Male
  Weight: 85.1 kg

DRUGS (5)
  1. PAMIDRONATE DISODIUM [Suspect]
     Indication: OSTEOPOROSIS
     Dosage: 60 MG IV
     Route: 042
     Dates: start: 20060915, end: 20060915
  2. AMLODIPINE [Concomitant]
  3. DIGOXIN [Concomitant]
  4. OMEPRAZOLE [Concomitant]
  5. TRAMADOL HCL [Concomitant]

REACTIONS (2)
  - PAIN [None]
  - PHLEBITIS [None]
